FAERS Safety Report 17711987 (Version 1)
Quarter: 2020Q2

REPORT INFORMATION
  Report Type: Spontaneous
  Country: US (occurrence: US)
  Receive Date: 20200427
  Receipt Date: 20200427
  Transmission Date: 20200714
  Serious: No
  Sender: FDA-Public Use
  Company Number: US-ANIPHARMA-2020-US-002358

PATIENT
  Age: 61 Year
  Sex: Female
  Weight: 90.72 kg

DRUGS (1)
  1. MORPHINE SULFATE ORAL SOLUTION (NON-SPECIFIC) [Suspect]
     Active Substance: MORPHINE SULFATE
     Indication: PRODUCT USED FOR UNKNOWN INDICATION
     Route: 065

REACTIONS (1)
  - Vomiting [Unknown]
